FAERS Safety Report 13984825 (Version 3)
Quarter: 2017Q4

REPORT INFORMATION
  Report Type: Report from Study
  Country: None (occurrence: FR)
  Receive Date: 20170918
  Receipt Date: 20171019
  Transmission Date: 20180321
  Serious: Yes (Death, Life-Threatening, Hospitalization)
  Sender: FDA-Public Use
  Company Number: FR-ABBVIE-17K-056-2104929-00

PATIENT
  Age: 79 Year
  Sex: Female
  Weight: 40 kg

DRUGS (1)
  1. DUODOPA [Suspect]
     Active Substance: CARBIDOPA\LEVODOPA
     Indication: PARKINSON^S DISEASE
     Route: 050
     Dates: start: 20160125

REACTIONS (13)
  - Dysphonia [Unknown]
  - Dysarthria [Unknown]
  - Respiratory failure [Fatal]
  - Wound necrosis [Fatal]
  - General physical health deterioration [Not Recovered/Not Resolved]
  - Acute pulmonary oedema [Fatal]
  - Wound sepsis [Fatal]
  - Wound complication [Fatal]
  - Pneumonia aspiration [Fatal]
  - Cardiac failure [Unknown]
  - Mobility decreased [Unknown]
  - Bradykinesia [Unknown]
  - Amimia [Unknown]

NARRATIVE: CASE EVENT DATE: 201709
